FAERS Safety Report 4895032-3 (Version None)
Quarter: 2006Q1

REPORT INFORMATION
  Report Type: 
  Country: None (occurrence: None)
  Receive Date: 20060124
  Receipt Date: 20060112
  Transmission Date: 20060701
  Serious: Yes (Hospitalization)
  Sender: FDA-Public Use
  Company Number: OMPQ-NO-0601L-0031

PATIENT
  Age: 61 Year
  Sex: Female
  Weight: 52 kg

DRUGS (8)
  1. OMNIPAQUE 140 [Suspect]
     Indication: EPIDURAL ANAESTHESIA
     Dosage: 2 ML, SINGLE DOSE, EPIDURAL
     Route: 008
     Dates: start: 20050509, end: 20050509
  2. CARBOCAIN [Concomitant]
  3. DECADRON PHOSPHATE [Concomitant]
  4. ANAPEINE [Concomitant]
  5. CYANOCOBALAMIN [Concomitant]
  6. TRYPTANOL [Concomitant]
  7. PALUX [Concomitant]
  8. XYLOCAINE [Concomitant]

REACTIONS (4)
  - ACUTE GENERALISED EXANTHEMATOUS PUSTULOSIS [None]
  - HEPATIC FUNCTION ABNORMAL [None]
  - OFF LABEL USE [None]
  - SKIN TEST POSITIVE [None]
